FAERS Safety Report 7222910-2 (Version None)
Quarter: 2011Q1

REPORT INFORMATION
  Report Type: 
  Country: None (occurrence: None)
  Receive Date: 20110106
  Receipt Date: 20110106
  Transmission Date: 20110831
  Serious: Yes (Hospitalization)
  Sender: FDA-Public Use
  Company Number: None

PATIENT
  Age: 53 Year
  Sex: Female
  Weight: 158 kg

DRUGS (8)
  1. LEVOTHYROXINE [Concomitant]
  2. PIOGLITAZONE [Concomitant]
  3. LASIX [Concomitant]
  4. FOLIC ACID [Concomitant]
  5. GLARGINE [Concomitant]
  6. METHOTREXATE [Suspect]
     Indication: PSORIASIS
     Dosage: 15MG DAILY PO RECENT
     Route: 048
  7. PREDNISONE [Concomitant]
  8. METFORMIN [Concomitant]

REACTIONS (3)
  - HYPERAESTHESIA [None]
  - ACCIDENTAL OVERDOSE [None]
  - ORAL PAIN [None]
